FAERS Safety Report 8180985-0 (Version None)
Quarter: 2012Q1

REPORT INFORMATION
  Report Type: 
  Country: None (occurrence: None)
  Receive Date: 20120302
  Receipt Date: 20120220
  Transmission Date: 20120608
  Serious: Yes (Hospitalization)
  Sender: FDA-Public Use
  Company Number: DE-INCYTE CORPORATION-2012IN000269

PATIENT
  Sex: Male
  Weight: 67.3 kg

DRUGS (1)
  1. INCB018424 [Suspect]
     Indication: ONCOLOGIC COMPLICATION
     Dosage: 20 MG, BID
     Route: 048
     Dates: start: 20120120, end: 20120220

REACTIONS (1)
  - ACUTE CORONARY SYNDROME [None]
